FAERS Safety Report 10493460 (Version 2)
Quarter: 2014Q4

REPORT INFORMATION
  Report Type: Spontaneous
  Country: US (occurrence: US)
  Receive Date: 20141002
  Receipt Date: 20141103
  Transmission Date: 20150528
  Serious: No
  Sender: FDA-Public Use
  Company Number: US-GLAXOSMITHKLINE-A1084353A

PATIENT
  Sex: Female

DRUGS (2)
  1. UNKNOWN [Concomitant]
     Active Substance: UNSPECIFIED INGREDIENT
  2. ADVAIR DISKUS [Suspect]
     Active Substance: FLUTICASONE PROPIONATE\SALMETEROL XINAFOATE
     Indication: PRODUCT USED FOR UNKNOWN INDICATION
     Dosage: 500/50
     Route: 055
     Dates: start: 2012

REACTIONS (3)
  - Product quality issue [Unknown]
  - Dizziness [Not Recovered/Not Resolved]
  - Therapeutic response decreased [Unknown]
